FAERS Safety Report 17412419 (Version 1)
Quarter: 2020Q1

REPORT INFORMATION
  Report Type: Spontaneous
  Country: US (occurrence: US)
  Receive Date: 20200213
  Receipt Date: 20200213
  Transmission Date: 20200409
  Serious: No
  Sender: FDA-Public Use
  Company Number: US-GLENMARK PHARMACEUTICALS-2019GMK043950

PATIENT

DRUGS (1)
  1. ADAPALENE GEL USP, 0.1 % [Suspect]
     Active Substance: ADAPALENE
     Indication: ACNE
     Dosage: UNK, HS (APPLIED AT NIGHT)
     Route: 061
     Dates: start: 201909, end: 20191009

REACTIONS (2)
  - Erythema [Recovering/Resolving]
  - Rash [Recovering/Resolving]

NARRATIVE: CASE EVENT DATE: 2019
